FAERS Safety Report 9485391 (Version 1)
Quarter: 2013Q3

REPORT INFORMATION
  Report Type: Spontaneous
  Country: US (occurrence: US)
  Receive Date: 20130829
  Receipt Date: 20130829
  Transmission Date: 20140515
  Serious: No
  Sender: FDA-Public Use
  Company Number: US-009507513-1308USA011971

PATIENT
  Age: 32 Year
  Sex: Female

DRUGS (3)
  1. NUVARING [Suspect]
     Indication: MENSTRUAL CYCLE MANAGEMENT
     Dosage: UNK, 0.15/.12, ONE RING
     Route: 067
     Dates: end: 20130821
  2. NUVARING [Suspect]
     Dosage: UNK
  3. SIMVASTATIN [Concomitant]

REACTIONS (1)
  - Metrorrhagia [Unknown]
